FAERS Safety Report 14308798 (Version 1)
Quarter: 2017Q4

REPORT INFORMATION
  Report Type: Spontaneous
  Country: US (occurrence: US)
  Receive Date: 20171220
  Receipt Date: 20171220
  Transmission Date: 20180321
  Serious: No
  Sender: FDA-Public Use
  Company Number: None

PATIENT
  Age: 42 Year
  Sex: Female

DRUGS (1)
  1. MYCOPHENOLATE MOFETIL CAP 250MG [Suspect]
     Active Substance: MYCOPHENOLATE MOFETIL

REACTIONS (11)
  - Drug dose omission [None]
  - Visual impairment [None]
  - Reading disorder [None]
  - Weight decreased [None]
  - Pain in extremity [None]
  - Eye pain [None]
  - Back pain [None]
  - Deafness unilateral [None]
  - Arthralgia [None]
  - Condition aggravated [None]
  - Peripheral swelling [None]

NARRATIVE: CASE EVENT DATE: 20170919
